FAERS Safety Report 9814883 (Version 1)
Quarter: 2014Q1

REPORT INFORMATION
  Report Type: Spontaneous
  Country: JP (occurrence: JP)
  Receive Date: 20140113
  Receipt Date: 20140113
  Transmission Date: 20141002
  Serious: Yes (Other)
  Sender: FDA-Public Use
  Company Number: JP-GLAXOSMITHKLINE-B0959408A

PATIENT
  Sex: Male

DRUGS (7)
  1. PAXIL [Suspect]
     Indication: MAJOR DEPRESSION
     Dosage: 25MG TWICE PER DAY
     Route: 048
     Dates: end: 20131230
  2. TOFRANIL [Concomitant]
     Route: 048
     Dates: end: 20131230
  3. ANAFRANIL [Concomitant]
     Route: 048
     Dates: end: 20131230
  4. TOLEDOMIN [Concomitant]
     Route: 048
  5. ABILIFY [Concomitant]
     Route: 048
  6. OLMETEC [Concomitant]
     Route: 048
  7. ZYLORIC [Concomitant]
     Route: 048

REACTIONS (2)
  - Ileus [Unknown]
  - Blood creatine phosphokinase abnormal [Recovered/Resolved]
